FAERS Safety Report 14089243 (Version 1)
Quarter: 2017Q4

REPORT INFORMATION
  Report Type: Spontaneous
  Country: CH (occurrence: CH)
  Receive Date: 20171014
  Receipt Date: 20171014
  Transmission Date: 20180321
  Serious: Yes (Other)
  Sender: FDA-Public Use
  Company Number: CH-GLENMARK PHARMACEUTICALS-2017GMK029205

PATIENT
  Age: 11 Year
  Sex: Female

DRUGS (2)
  1. NAPROXEN SODIUM. [Suspect]
     Active Substance: NAPROXEN SODIUM
     Indication: STILL^S DISEASE
     Dosage: UNK
     Route: 065
  2. METHOTREXATE. [Suspect]
     Active Substance: METHOTREXATE
     Indication: STILL^S DISEASE
     Dosage: 17.5 MG, QW
     Route: 065

REACTIONS (2)
  - Disease recurrence [Unknown]
  - Still^s disease [Unknown]
